FAERS Safety Report 4506853-0 (Version None)
Quarter: 2004Q4

REPORT INFORMATION
  Report Type: 
  Country: None (occurrence: None)
  Receive Date: 20041117
  Receipt Date: 20041104
  Transmission Date: 20050328
  Serious: Yes (Other)
  Sender: FDA-Public Use
  Company Number: HQWYE389711NOV04

PATIENT
  Sex: Male
  Weight: 3.63 kg

DRUGS (3)
  1. EFFEXOR XR [Suspect]
     Indication: ANXIETY
     Dosage: 75 MG 2X PER 1 DAY, TRANSPLACENTAL
     Route: 064
     Dates: start: 20010101
  2. EFFEXOR XR [Suspect]
     Indication: DEPRESSION
     Dosage: 75 MG 2X PER 1 DAY, TRANSPLACENTAL
     Route: 064
     Dates: start: 20010101
  3. VITAMINS (VITAMINS) [Concomitant]

REACTIONS (4)
  - APGAR SCORE LOW [None]
  - CONGENITAL FLOPPY INFANT [None]
  - DRUG EXPOSURE DURING PREGNANCY [None]
  - HYPOTONIA NEONATAL [None]
